FAERS Safety Report 9421508 (Version 4)
Quarter: 2014Q2

REPORT INFORMATION
  Report Type: Report from Study
  Country: US (occurrence: US)
  Receive Date: 20130726
  Receipt Date: 20140519
  Transmission Date: 20141212
  Serious: Yes (Hospitalization, Other)
  Sender: FDA-Public Use
  Company Number: US-BIOGENIDEC-2013BI066623

PATIENT
  Age: 0 Day
  Sex: Male

DRUGS (1)
  1. AVONEX [Suspect]
     Indication: MATERNAL EXPOSURE TIMING UNSPECIFIED
     Route: 064
     Dates: start: 20050429, end: 20100402

REACTIONS (6)
  - Low birth weight baby [Recovered/Resolved]
  - Apgar score low [Unknown]
  - Intestinal gangrene [Recovered/Resolved]
  - Klebsiella infection [Recovered/Resolved]
  - Enterobacter infection [Recovered/Resolved]
  - Citrobacter infection [Recovered/Resolved]
